FAERS Safety Report 4623924-9 (Version None)
Quarter: 2005Q1

REPORT INFORMATION
  Report Type: 
  Country: None (occurrence: None)
  Receive Date: 20050331
  Receipt Date: 20041105
  Transmission Date: 20050727
  Serious: Yes (Hospitalization, Disabling, Other)
  Sender: FDA-Public Use
  Company Number: DE-MERCK-0411DEU00119

PATIENT
  Age: 60 Year
  Sex: Male
  Weight: 76 kg

DRUGS (5)
  1. VIOXX [Suspect]
     Route: 048
     Dates: start: 20000101
  2. ASPIRIN [Concomitant]
     Route: 048
     Dates: end: 20030301
  3. DICLOFENAC [Concomitant]
     Route: 065
     Dates: start: 20030201
  4. METFORMIN HYDROCHLORIDE [Concomitant]
     Indication: DIABETES MELLITUS
     Route: 048
     Dates: start: 20030401
  5. UVA URSI [Concomitant]
     Indication: DYSURIA
     Route: 048
     Dates: start: 20030523

REACTIONS (3)
  - CEREBROVASCULAR ACCIDENT [None]
  - EPIDIDYMITIS [None]
  - VASCULAR ENCEPHALOPATHY [None]
